FAERS Safety Report 7349742-9 (Version None)
Quarter: 2011Q1

REPORT INFORMATION
  Report Type: 
  Country: None (occurrence: None)
  Receive Date: 20110314
  Receipt Date: 20101223
  Transmission Date: 20110831
  Serious: Yes (Other)
  Sender: FDA-Public Use
  Company Number: US-BAYER-201029001NA

PATIENT
  Sex: Female

DRUGS (3)
  1. YAZ [Suspect]
     Indication: MENSTRUAL CYCLE MANAGEMENT
     Route: 048
     Dates: start: 20060101, end: 20100402
  2. NEXIUM [Concomitant]
  3. YAZ [Suspect]
     Indication: ORAL CONTRACEPTION

REACTIONS (6)
  - ABDOMINAL PAIN UPPER [None]
  - CHOLELITHIASIS [None]
  - ABDOMINAL PAIN LOWER [None]
  - ABDOMINAL PAIN [None]
  - GASTROINTESTINAL DISORDER [None]
  - BACK PAIN [None]
